FAERS Safety Report 6852820-1 (Version None)
Quarter: 2010Q3

REPORT INFORMATION
  Report Type: 
  Country: None (occurrence: None)
  Receive Date: 20100717
  Receipt Date: 20071128
  Transmission Date: 20110219
  Serious: No
  Sender: FDA-Public Use
  Company Number: US-PFIZER INC-2007099644

PATIENT
  Sex: Female
  Weight: 53.1 kg

DRUGS (9)
  1. CHANTIX [Suspect]
     Indication: SMOKING CESSATION THERAPY
     Dates: start: 20071117
  2. PREDNISONE [Concomitant]
  3. SYNTHROID [Concomitant]
  4. ALLOPURINOL [Concomitant]
  5. ATENOLOL [Concomitant]
  6. TRICOR [Concomitant]
  7. ZETIA [Concomitant]
  8. HYDROCHLOROTHIAZIDE [Concomitant]
  9. GLUCOSAMINE [Concomitant]

REACTIONS (1)
  - VOMITING [None]
